FAERS Safety Report 23382451 (Version 1)
Quarter: 2024Q1

REPORT INFORMATION
  Report Type: Spontaneous
  Country: US (occurrence: US)
  Receive Date: 20240109
  Receipt Date: 20240109
  Transmission Date: 20240409
  Serious: No
  Sender: FDA-Public Use
  Company Number: US-LUPIN PHARMACEUTICALS INC.-2024-00044

PATIENT

DRUGS (2)
  1. LISINOPRIL [Suspect]
     Active Substance: LISINOPRIL
     Indication: Blood pressure abnormal
     Dosage: 1 DOSAGE FORM, QD
     Route: 065
     Dates: start: 202310
  2. LISINOPRIL [Suspect]
     Active Substance: LISINOPRIL
     Dosage: UNK HALF TABLET (5 MG)
     Route: 065

REACTIONS (5)
  - Dizziness [Unknown]
  - Nausea [Unknown]
  - Hypotension [Recovering/Resolving]
  - Wrong technique in product usage process [Unknown]
  - Intentional product use issue [Unknown]
